FAERS Safety Report 6164154-1 (Version None)
Quarter: 2009Q2

REPORT INFORMATION
  Report Type: 
  Country: None (occurrence: None)
  Receive Date: 20090420
  Receipt Date: 20090408
  Transmission Date: 20091009
  Serious: Yes (Death)
  Sender: FDA-Public Use
  Company Number: 2009-194664-NL

PATIENT
  Age: 29 Year
  Sex: Female

DRUGS (4)
  1. MIRTAZAPINE [Suspect]
     Indication: DEPRESSION
     Dosage: 30 MG ; 45 MG ORAL
     Route: 048
     Dates: start: 20080630
  2. METOCLOPRAMIDE [Concomitant]
  3. OMEPRAZOLE [Concomitant]
  4. SALBUTAMOL [Concomitant]

REACTIONS (1)
  - DIABETIC KETOACIDOSIS [None]
